FAERS Safety Report 6709639-1 (Version None)
Quarter: 2010Q2

REPORT INFORMATION
  Report Type: 
  Country: None (occurrence: None)
  Receive Date: 20100503
  Receipt Date: 20100503
  Transmission Date: 20101027
  Serious: Yes (Other)
  Sender: FDA-Public Use
  Company Number: None

PATIENT
  Age: 1 Year
  Sex: Female
  Weight: 9.9791 kg

DRUGS (6)
  1. CHILDREN'S TYLENOL DYE FREE CHER 160 MG PER 5 ML TYLENOL J AND J [Suspect]
     Indication: INFLUENZA
     Dosage: 5 ML 4-6 HOURS PO 2-3 WEEKS PLUS
     Route: 048
     Dates: start: 20100214, end: 20100430
  2. CHILDREN'S TYLENOL DYE FREE CHER 160 MG PER 5 ML TYLENOL J AND J [Suspect]
     Indication: PYREXIA
     Dosage: 5 ML 4-6 HOURS PO 2-3 WEEKS PLUS
     Route: 048
     Dates: start: 20100214, end: 20100430
  3. CHILDREN'S TYLENOL DYE FREE CHER 160 MG PER 5 ML TYLENOL J AND J [Suspect]
     Indication: TEETHING
     Dosage: 5 ML 4-6 HOURS PO 2-3 WEEKS PLUS
     Route: 048
     Dates: start: 20100214, end: 20100430
  4. MOTRIN CONCENTRATED 50MG PER 1.25 ML J AND J [Suspect]
     Indication: INFLUENZA
     Dosage: 1.875 ML 6-8 HOURS PO 2-3 WEEKS PLUS
     Route: 048
     Dates: start: 20100214, end: 20100430
  5. MOTRIN CONCENTRATED 50MG PER 1.25 ML J AND J [Suspect]
     Indication: PRURITUS
     Dosage: 1.875 ML 6-8 HOURS PO 2-3 WEEKS PLUS
     Route: 048
     Dates: start: 20100214, end: 20100430
  6. MOTRIN CONCENTRATED 50MG PER 1.25 ML J AND J [Suspect]
     Indication: PYREXIA
     Dosage: 1.875 ML 6-8 HOURS PO 2-3 WEEKS PLUS
     Route: 048
     Dates: start: 20100214, end: 20100430

REACTIONS (6)
  - ABDOMINAL PAIN UPPER [None]
  - DIARRHOEA [None]
  - DRUG INEFFECTIVE [None]
  - INSOMNIA [None]
  - RHINORRHOEA [None]
  - SKIN ODOUR ABNORMAL [None]
